FAERS Safety Report 8233144-7 (Version None)
Quarter: 2012Q1

REPORT INFORMATION
  Report Type: 
  Country: None (occurrence: None)
  Receive Date: 20120326
  Receipt Date: 20120321
  Transmission Date: 20120608
  Serious: No
  Sender: FDA-Public Use
  Company Number: US-PFIZER INC-2012074013

PATIENT
  Sex: Female

DRUGS (1)
  1. IBUPROFEN (ADVIL) [Suspect]
     Indication: SINUS HEADACHE
     Dosage: 400 MG, 1X/DAY
     Route: 048
     Dates: start: 20020101, end: 20120313

REACTIONS (2)
  - DRUG INEFFECTIVE [None]
  - DISTURBANCE IN ATTENTION [None]
